FAERS Safety Report 17878212 (Version 2)
Quarter: 2020Q2

REPORT INFORMATION
  Report Type: Spontaneous
  Country: US (occurrence: US)
  Receive Date: 20200609
  Receipt Date: 20200616
  Transmission Date: 20200714
  Serious: Yes (Hospitalization, Other)
  Sender: FDA-Public Use
  Company Number: US-GLENMARK PHARMACEUTICALS-2020GMK048029

PATIENT

DRUGS (10)
  1. PRAMIPEXOLE DIHYDROCHLORIDE. [Suspect]
     Active Substance: PRAMIPEXOLE DIHYDROCHLORIDE
     Indication: RESTLESS LEGS SYNDROME
     Dosage: UNK (8 PILLS) (DOSE TAPERED)
     Route: 065
  2. LEXAPRO [Concomitant]
     Active Substance: ESCITALOPRAM OXALATE
     Indication: DEPRESSION
     Dosage: 40 MILLIGRAM, QD (2 X 20MG, ONCE A DAY IN THE MORNING)
     Route: 065
  3. PRAMIPEXOLE DIHYDROCHLORIDE. [Suspect]
     Active Substance: PRAMIPEXOLE DIHYDROCHLORIDE
     Dosage: 6.5 MILLIGRAM, QD (CONTINUED TO TAKE AFTER DISCHARGE FROM HOSPITAL EVEN DOCTOR ASKED HER TO DISCONTI
     Route: 065
     Dates: start: 202005
  4. LEXAPRO [Concomitant]
     Active Substance: ESCITALOPRAM OXALATE
     Indication: ANXIETY
  5. PRAMIPEXOLE DIHYDROCHLORIDE. [Suspect]
     Active Substance: PRAMIPEXOLE DIHYDROCHLORIDE
     Dosage: UNK (DRUG DISCONTINUED DURING HOSPITALIZATION)
     Route: 065
     Dates: start: 20200513, end: 20200515
  6. KLONOPIN [Concomitant]
     Active Substance: CLONAZEPAM
     Indication: ANXIETY
     Dosage: 2 MILLIGRAM, BID
     Route: 065
  7. PROPRANOLOL [Concomitant]
     Active Substance: PROPRANOLOL HYDROCHLORIDE
     Indication: CARDIOVASCULAR EVENT PROPHYLAXIS
     Dosage: 60 MILLIGRAM, OD
     Route: 065
  8. ZONEGRAN [Concomitant]
     Active Substance: ZONISAMIDE
     Indication: SEIZURE
     Dosage: 300 MILLIGRAM, QD (100MG IN THE MORNING AND 200 MG IN THE EVENING)
     Route: 065
  9. SUBOXONE [Concomitant]
     Active Substance: BUPRENORPHINE HYDROCHLORIDE\NALOXONE HYDROCHLORIDE
     Indication: PRODUCT USED FOR UNKNOWN INDICATION
     Dosage: UNK
     Route: 065
  10. PRAMIPEXOLE DIHYDROCHLORIDE. [Suspect]
     Active Substance: PRAMIPEXOLE DIHYDROCHLORIDE
     Dosage: 6.5 MILLIGRAM, QD (STARTED WITH 13 PILLS WITHOUT DOCTOR ADVICE DUE TO LACK OF EFFICACY)
     Route: 065
     Dates: start: 202004

REACTIONS (13)
  - Anxiety [Not Recovered/Not Resolved]
  - Fatigue [Unknown]
  - Pain in extremity [Unknown]
  - Withdrawal syndrome [Not Recovered/Not Resolved]
  - Neoplasm malignant [Unknown]
  - Intentional overdose [Unknown]
  - Insomnia [Recovered/Resolved]
  - Restlessness [Recovered/Resolved]
  - Muscle spasms [Unknown]
  - Therapeutic product effect decreased [Unknown]
  - Nausea [Unknown]
  - Intentional product misuse [Unknown]
  - Cerebral disorder [Unknown]

NARRATIVE: CASE EVENT DATE: 201909
